FAERS Safety Report 7981431-X (Version None)
Quarter: 2011Q4

REPORT INFORMATION
  Report Type: 
  Country: None (occurrence: None)
  Receive Date: 20111213
  Receipt Date: 20111129
  Transmission Date: 20120403
  Serious: No
  Sender: FDA-Public Use
  Company Number: 2011-4559

PATIENT
  Age: 51 Year
  Sex: Female

DRUGS (1)
  1. SOMATULINE DEPOT [Suspect]
     Indication: NEUROENDOCRINE TUMOUR
     Dosage: 20 MG (20 MG, 1 IN 2 WK), SUBCUTANEOUS
     Route: 058
     Dates: start: 20101008, end: 20110104

REACTIONS (1)
  - GRANULOMA [None]
